FAERS Safety Report 15401470 (Version 3)
Quarter: 2018Q4

REPORT INFORMATION
  Report Type: Spontaneous
  Country: US (occurrence: US)
  Receive Date: 20180919
  Receipt Date: 20181018
  Transmission Date: 20190204
  Serious: No
  Sender: FDA-Public Use
  Company Number: US-PFIZER INC-2018377390

PATIENT
  Age: 62 Year
  Sex: Female

DRUGS (2)
  1. PROTONIX [Suspect]
     Active Substance: PANTOPRAZOLE SODIUM
     Indication: GASTROOESOPHAGEAL REFLUX DISEASE
     Dosage: UNK
     Dates: start: 2015
  2. PROTONIX [Suspect]
     Active Substance: PANTOPRAZOLE SODIUM
     Dosage: 40 MG, 2X/DAY

REACTIONS (7)
  - Fatigue [Unknown]
  - Vomiting [Unknown]
  - Malaise [Unknown]
  - Abdominal distension [Unknown]
  - Dry mouth [Unknown]
  - Abdominal pain upper [Unknown]
  - Myalgia [Unknown]
